APPROVED DRUG PRODUCT: METHYLDOPA AND HYDROCHLOROTHIAZIDE
Active Ingredient: HYDROCHLOROTHIAZIDE; METHYLDOPA
Strength: 50MG;500MG
Dosage Form/Route: TABLET;ORAL
Application: A070614 | Product #001
Applicant: STRIDES PHARMA INTERNATIONAL AG
Approved: Feb 2, 1987 | RLD: No | RS: No | Type: DISCN